FAERS Safety Report 25736914 (Version 1)
Quarter: 2025Q3

REPORT INFORMATION
  Report Type: Spontaneous
  Country: US (occurrence: US)
  Receive Date: 20250828
  Receipt Date: 20250828
  Transmission Date: 20251020
  Serious: Yes (Other)
  Sender: PFIZER
  Company Number: US-PFIZER INC-PV202500103502

PATIENT
  Age: 83 Year
  Sex: Female

DRUGS (9)
  1. PALBOCICLIB [Suspect]
     Active Substance: PALBOCICLIB
  2. PALBOCICLIB [Suspect]
     Active Substance: PALBOCICLIB
  3. LETROZOLE [Suspect]
     Active Substance: LETROZOLE
  4. DENOSUMAB [Suspect]
     Active Substance: DENOSUMAB
  5. FULVESTRANT [Concomitant]
     Active Substance: FULVESTRANT
  6. ABEMACICLIB [Concomitant]
     Active Substance: ABEMACICLIB
  7. ELACESTRANT [Concomitant]
     Active Substance: ELACESTRANT
  8. CAPECITABINE [Concomitant]
     Active Substance: CAPECITABINE
  9. TRASTUZUMAB DERUXTECAN [Concomitant]
     Active Substance: TRASTUZUMAB DERUXTECAN

REACTIONS (8)
  - Neutropenia [Unknown]
  - Metastases to bone [Unknown]
  - Metastases to liver [Unknown]
  - Malignant neoplasm progression [Recovering/Resolving]
  - Alopecia [Unknown]
  - Arthralgia [Unknown]
  - Fatigue [Unknown]
  - Pyrexia [Unknown]
